FAERS Safety Report 7066467-8 (Version None)
Quarter: 2010Q4

REPORT INFORMATION
  Report Type: 
  Country: None (occurrence: None)
  Receive Date: 20101027
  Receipt Date: 20100224
  Transmission Date: 20110411
  Serious: No
  Sender: FDA-Public Use
  Company Number: US-WYE-H13824710

PATIENT
  Age: 54 Year
  Sex: Female
  Weight: 90.8 kg

DRUGS (3)
  1. PREMPRO [Suspect]
     Indication: HOT FLUSH
     Route: 048
     Dates: start: 20100205, end: 20100221
  2. SOMA [Concomitant]
  3. OXYCONTIN [Concomitant]

REACTIONS (1)
  - METRORRHAGIA [None]
